FAERS Safety Report 5133951-3 (Version None)
Quarter: 2006Q4

REPORT INFORMATION
  Report Type: 
  Country: None (occurrence: None)
  Receive Date: 20061019
  Receipt Date: 20061009
  Transmission Date: 20070319
  Serious: Yes (Other)
  Sender: FDA-Public Use
  Company Number: B0441787A

PATIENT
  Age: 24 Month
  Sex: Female

DRUGS (1)
  1. ALBENZA [Suspect]
     Indication: ABDOMINAL PAIN
     Dosage: 400 MG / SINGLE DOSE / ORAL
     Route: 048

REACTIONS (3)
  - APHTHOUS STOMATITIS [None]
  - DERMATITIS BULLOUS [None]
  - EPIDERMOLYSIS [None]
